FAERS Safety Report 5704999-2 (Version None)
Quarter: 2008Q2

REPORT INFORMATION
  Report Type: 
  Country: None (occurrence: None)
  Receive Date: 20080414
  Receipt Date: 20080403
  Transmission Date: 20081010
  Serious: Yes (Hospitalization)
  Sender: FDA-Public Use
  Company Number: US-AMGEN-STX266406

PATIENT
  Sex: Female
  Weight: 119.9 kg

DRUGS (2)
  1. ENBREL [Suspect]
     Indication: RHEUMATOID ARTHRITIS
     Route: 058
     Dates: start: 20061021
  2. METHOTREXATE [Concomitant]
     Route: 048
     Dates: start: 20050101

REACTIONS (14)
  - ADVERSE DRUG REACTION [None]
  - ALOPECIA [None]
  - BREAST CANCER [None]
  - HOT FLUSH [None]
  - INCISIONAL DRAINAGE [None]
  - INJECTION SITE PAIN [None]
  - MUSCULOSKELETAL PAIN [None]
  - NAUSEA [None]
  - NOCTURIA [None]
  - ONYCHOMADESIS [None]
  - PLEURITIC PAIN [None]
  - RADIATION SKIN INJURY [None]
  - RHEUMATOID ARTHRITIS [None]
  - STOMATITIS [None]
